FAERS Safety Report 7333220-7 (Version None)
Quarter: 2011Q1

REPORT INFORMATION
  Report Type: 
  Country: None (occurrence: None)
  Receive Date: 20110224
  Receipt Date: 20110208
  Transmission Date: 20110831
  Serious: Yes (Hospitalization)
  Sender: FDA-Public Use
  Company Number: DSA_44970_2011

PATIENT
  Age: 55 Year
  Sex: Male

DRUGS (4)
  1. SIMVASTATIN [Suspect]
     Indication: HYPERLIPIDAEMIA
     Dosage: DF ORAL
     Route: 048
     Dates: end: 20100820
  2. SIMVASTATIN [Suspect]
     Indication: HYPERTRIGLYCERIDAEMIA
     Dosage: DF ORAL
     Route: 048
     Dates: end: 20100820
  3. METOPROLOL [Concomitant]
  4. ENALAPRIL MALEATE [Suspect]
     Indication: ESSENTIAL HYPERTENSION
     Dosage: 10 MG QD, ORAL
     Route: 048
     Dates: end: 20100820

REACTIONS (8)
  - MYALGIA [None]
  - RENAL DISORDER [None]
  - BLOOD CREATINE PHOSPHOKINASE INCREASED [None]
  - MUSCULOSKELETAL PAIN [None]
  - TRANSAMINASES INCREASED [None]
  - BLOOD CREATININE INCREASED [None]
  - FATIGUE [None]
  - PAIN IN EXTREMITY [None]
